FAERS Safety Report 4686421-0 (Version None)
Quarter: 2005Q2

REPORT INFORMATION
  Report Type: 
  Country: None (occurrence: None)
  Receive Date: 20050606
  Receipt Date: 20050525
  Transmission Date: 20051028
  Serious: Yes (Other)
  Sender: FDA-Public Use
  Company Number: 2005080722

PATIENT
  Age: 64 Year
  Sex: Female

DRUGS (3)
  1. DOXORUBICIN HYDROCHLORIDE [Suspect]
     Indication: ILL-DEFINED DISORDER
     Dosage: 20 MG (EVERY 4 WEEKS), INTRA-ARTERIAL
     Route: 013
  2. FLUOROURACIL [Suspect]
     Indication: ILL-DEFINED DISORDER
     Dosage: 500 MG (EVERY 4 WEEKS, INTRA-ARTERIAL
     Route: 013
  3. MITOMICINA C                   (MITOMYCIN) [Suspect]
     Indication: BREAST CANCER
     Dosage: 4 MG (EVERY 4 WEEKS), INTRA-ARTERIAL
     Route: 013

REACTIONS (2)
  - DERMATITIS [None]
  - FIBROSIS [None]
